FAERS Safety Report 25727364 (Version 1)
Quarter: 2025Q3

REPORT INFORMATION
  Report Type: Report from Study
  Country: US (occurrence: US)
  Receive Date: 20250826
  Receipt Date: 20250826
  Transmission Date: 20251021
  Serious: Yes (Hospitalization)
  Sender: UCB
  Company Number: US-UCBSA-2025028317

PATIENT
  Sex: Female

DRUGS (1)
  1. BIMEKIZUMAB [Suspect]
     Active Substance: BIMEKIZUMAB
     Indication: Hidradenitis
     Dosage: 320 MILLIGRAM, EV 2 WEEKS(QOW)
     Route: 058
     Dates: start: 20250428, end: 2025

REACTIONS (10)
  - Abscess [Not Recovered/Not Resolved]
  - Sepsis [Recovering/Resolving]
  - Surgery [Recovering/Resolving]
  - Stress [Recovering/Resolving]
  - Post procedural complication [Recovered/Resolved]
  - Injection site bruising [Recovered/Resolved]
  - Injection site nodule [Recovering/Resolving]
  - Injection site pain [Recovered/Resolved]
  - Product availability issue [Unknown]
  - Therapy interrupted [Unknown]

NARRATIVE: CASE EVENT DATE: 20250101
